FAERS Safety Report 5793671-9 (Version None)
Quarter: 2008Q2

REPORT INFORMATION
  Report Type: 
  Country: None (occurrence: None)
  Receive Date: 20080627
  Receipt Date: 20080619
  Transmission Date: 20081010
  Serious: Yes (Hospitalization, Other)
  Sender: FDA-Public Use
  Company Number: CA-ABBOTT-08P-028-0455827-00

PATIENT
  Sex: Male

DRUGS (2)
  1. HUMIRA [Suspect]
     Indication: CROHN'S DISEASE
     Dosage: 160 MG INITIAL DOSE
     Route: 058
     Dates: start: 20080528
  2. HUMIRA [Suspect]
     Route: 058
     Dates: end: 20080611

REACTIONS (6)
  - ABDOMINAL DISTENSION [None]
  - ABDOMINAL PAIN [None]
  - ABDOMINAL RIGIDITY [None]
  - COLECTOMY [None]
  - GASTROINTESTINAL HYPOMOTILITY [None]
  - MYOCARDIAL INFARCTION [None]
